FAERS Safety Report 21481635 (Version 1)
Quarter: 2022Q4

REPORT INFORMATION
  Report Type: Spontaneous
  Country: FR (occurrence: FR)
  Receive Date: 20221020
  Receipt Date: 20221020
  Transmission Date: 20230112
  Serious: Yes (Hospitalization)
  Sender: FDA-Public Use
  Company Number: None

PATIENT
  Age: 79 Year
  Sex: Male
  Weight: 70 kg

DRUGS (12)
  1. AMLODIPINE [Suspect]
     Active Substance: AMLODIPINE BESYLATE
     Indication: Hypertension
     Dates: start: 20220805, end: 20220810
  2. AUGMENTIN [Suspect]
     Active Substance: AMOXICILLIN\CLAVULANATE POTASSIUM
     Indication: Pneumonia
     Dates: start: 20220728, end: 20220804
  3. LOVENOX [Concomitant]
     Active Substance: ENOXAPARIN SODIUM
     Indication: Thrombosis prophylaxis
     Dosage: 4000 ANTI-XA IU/0.4 ML,  SOLUTION FOR INJECTION IN CARTRIDGE
     Dates: start: 20220728, end: 20220816
  4. PRAVASTATIN [Concomitant]
     Active Substance: PRAVASTATIN
     Indication: Cardiovascular event prophylaxis
     Dates: start: 20220805, end: 20220816
  5. ALBUTEROL [Concomitant]
     Active Substance: ALBUTEROL
     Indication: Asthma
     Dates: start: 20220728, end: 20220816
  6. DOLIPRANE [Concomitant]
     Active Substance: ACETAMINOPHEN
     Indication: Pain
     Dosage: STRENGTH: 500 MG
     Dates: start: 20220728
  7. FUNGIZONE [Concomitant]
     Active Substance: AMPHOTERICIN B
     Indication: Oral infection
     Dosage: 10 PERCENT,
     Dates: start: 20220806, end: 20220821
  8. ADALIMUMAB [Concomitant]
     Active Substance: ADALIMUMAB
     Indication: Colitis
     Dosage: STRENGTH: 40 MG, SOLUTION FOR INJECTION IN PRE-FILLED PEN
     Dates: start: 20220801, end: 20220816
  9. IPRATROPIUM [Concomitant]
     Active Substance: IPRATROPIUM
     Indication: Asthma
     Dates: start: 20220728, end: 20220816
  10. SPIRIVA [Concomitant]
     Active Substance: TIOTROPIUM BROMIDE MONOHYDRATE
     Indication: Asthma
     Dosage: STRENGTH: 18 MICROGRAMS, POWDER FOR INHALATION IN CAPSULE
     Dates: start: 20220728, end: 20220816
  11. Dilatrane [Concomitant]
     Indication: Chronic obstructive pulmonary disease
     Dates: start: 20220802, end: 20220816
  12. SERETIDE [Concomitant]
     Active Substance: FLUTICASONE PROPIONATE\SALMETEROL XINAFOATE
     Indication: Chronic obstructive pulmonary disease
     Dosage: STRENGTH: 250/50 MICROGRAMS/DOSE, POWDER FOR INHALATION IN A SINGLE-DOSE CONTAINER
     Dates: start: 20220728, end: 20220816

REACTIONS (2)
  - Hypokalaemia [Recovered/Resolved]
  - Diarrhoea [Recovered/Resolved]

NARRATIVE: CASE EVENT DATE: 20220808
